FAERS Safety Report 17313824 (Version 2)
Quarter: 2020Q1

REPORT INFORMATION
  Report Type: Spontaneous
  Country: US (occurrence: US)
  Receive Date: 20200124
  Receipt Date: 20200207
  Transmission Date: 20200409
  Serious: Yes (Death, Hospitalization, Other)
  Sender: FDA-Public Use
  Company Number: US-HIKMA PHARMACEUTICALS USA INC.-US-H14001-20-00180

PATIENT
  Sex: Female

DRUGS (2)
  1. SILDENAFIL. [Concomitant]
     Active Substance: SILDENAFIL
     Indication: PRODUCT USED FOR UNKNOWN INDICATION
     Route: 065
  2. BOSENTAN. [Suspect]
     Active Substance: BOSENTAN
     Indication: PRODUCT USED FOR UNKNOWN INDICATION
     Route: 065

REACTIONS (9)
  - Pancreatitis [Unknown]
  - Peritonitis [Unknown]
  - Cardiac arrest [Fatal]
  - Chronic respiratory failure [Fatal]
  - Pseudomonas infection [Fatal]
  - Hypercapnia [Fatal]
  - Septic shock [Fatal]
  - Hypoxia [Fatal]
  - Haemophagocytic lymphohistiocytosis [Fatal]
